FAERS Safety Report 19534936 (Version 1)
Quarter: 2021Q3

REPORT INFORMATION
  Report Type: Spontaneous
  Country: US (occurrence: US)
  Receive Date: 20210713
  Receipt Date: 20210713
  Transmission Date: 20211014
  Serious: No
  Sender: FDA-Public Use
  Company Number: US-GILEAD-2021-0540284

PATIENT
  Sex: Female

DRUGS (2)
  1. MULTIVITAMINS [VITAMINS NOS] [Suspect]
     Active Substance: VITAMINS
  2. SOFOSBUVIR;VELPATASVIR [Suspect]
     Active Substance: SOFOSBUVIR\VELPATASVIR
     Indication: CHRONIC HEPATITIS C
     Dosage: 1 DOSAGE FORM, QD, IN THE MORNING FOR 12 WEEKS
     Route: 048

REACTIONS (1)
  - Fatigue [Unknown]
